FAERS Safety Report 10226745 (Version 3)
Quarter: 2014Q3

REPORT INFORMATION
  Report Type: Report from Study
  Country: IT (occurrence: IT)
  Receive Date: 20140610
  Receipt Date: 20140714
  Transmission Date: 20150326
  Serious: Yes (Life-Threatening, Hospitalization)
  Sender: FDA-Public Use
  Company Number: IT-ROCHE-1408359

PATIENT
  Age: 49 Year
  Sex: Male
  Weight: 89 kg

DRUGS (10)
  1. PEGINTERFERON ALFA-2A [Suspect]
     Active Substance: PEGINTERFERON ALFA-2A
     Indication: CHRONIC HEPATITIS C
     Route: 058
     Dates: start: 20130318, end: 20130712
  2. BUPROPION [Concomitant]
     Active Substance: BUPROPION
     Indication: ANXIETY
  3. OLANZAPINA [Concomitant]
     Active Substance: OLANZAPINE
     Indication: ANXIETY
  4. VALPROIC ACID. [Concomitant]
     Active Substance: VALPROIC ACID
     Indication: DEPRESSION
     Route: 048
  5. OLANZAPINA [Concomitant]
     Active Substance: OLANZAPINE
     Indication: DEPRESSION
     Route: 048
     Dates: end: 20130712
  6. VALPROIC ACID. [Concomitant]
     Active Substance: VALPROIC ACID
     Indication: ANXIETY
  7. REBETOL [Suspect]
     Active Substance: RIBAVIRIN
     Indication: CHRONIC HEPATITIS C
     Dosage: PER OS
     Route: 065
     Dates: start: 20130316, end: 20130712
  8. MIRTAZAPINA [Concomitant]
     Active Substance: MIRTAZAPINE
     Indication: DEPRESSION
     Route: 048
     Dates: end: 20130712
  9. MIRTAZAPINA [Concomitant]
     Active Substance: MIRTAZAPINE
     Indication: ANXIETY
  10. BUPROPION [Concomitant]
     Active Substance: BUPROPION
     Indication: DEPRESSION
     Route: 048
     Dates: end: 20130712

REACTIONS (7)
  - Facial bones fracture [Recovered/Resolved]
  - Multiple injuries [Recovered/Resolved]
  - Subdural haematoma [Recovered/Resolved]
  - Pneumocephalus [Recovered/Resolved]
  - Brain injury [Recovered/Resolved]
  - Fractured sacrum [Recovered/Resolved]
  - Cervical vertebral fracture [Recovered/Resolved]

NARRATIVE: CASE EVENT DATE: 20130712
